FAERS Safety Report 7058516-8 (Version None)
Quarter: 2010Q4

REPORT INFORMATION
  Report Type: 
  Country: None (occurrence: None)
  Receive Date: 20101022
  Receipt Date: 20100803
  Transmission Date: 20110411
  Serious: Yes (Hospitalization)
  Sender: FDA-Public Use
  Company Number: A0535191A

PATIENT
  Age: 18 Year
  Sex: Female

DRUGS (5)
  1. HERPES SIMPLEX VACCINE [Suspect]
     Route: 030
     Dates: start: 20040423, end: 20040423
  2. ACETAMINOPHEN [Suspect]
  3. ALCOHOL [Suspect]
  4. AMOXICILLIN [Suspect]
     Route: 048
     Dates: start: 20040916, end: 20040916
  5. HYDROCODONE [Suspect]
     Route: 048
     Dates: start: 20040916, end: 20040916

REACTIONS (5)
  - ANALGESIC DRUG LEVEL INCREASED [None]
  - BLOOD ALCOHOL [None]
  - HYPERSENSITIVITY [None]
  - SUICIDE ATTEMPT [None]
  - URTICARIA [None]
